FAERS Safety Report 18823547 (Version 2)
Quarter: 2021Q1

REPORT INFORMATION
  Report Type: Spontaneous
  Country: US (occurrence: US)
  Receive Date: 20210202
  Receipt Date: 20210210
  Transmission Date: 20210419
  Serious: No
  Sender: FDA-Public Use
  Company Number: US-SA-2021SA030876

PATIENT
  Age: 60 Year
  Sex: Female

DRUGS (2)
  1. TOUJEO [Suspect]
     Active Substance: INSULIN GLARGINE
     Dosage: 35 IU, HS
     Dates: start: 202011
  2. TOUJEO [Suspect]
     Active Substance: INSULIN GLARGINE
     Dosage: 35 IU, BID

REACTIONS (3)
  - Wrong dose [Unknown]
  - Wrong technique in product usage process [Unknown]
  - Off label use [Unknown]
